FAERS Safety Report 4804604-3 (Version None)
Quarter: 2005Q4

REPORT INFORMATION
  Report Type: 
  Country: None (occurrence: None)
  Receive Date: 20051020
  Receipt Date: 20050830
  Transmission Date: 20060501
  Serious: Yes (Death, Life-Threatening, Hospitalization, Other)
  Sender: FDA-Public Use
  Company Number: US-MERCK-0509USA00130

PATIENT
  Age: 59 Year
  Sex: Female
  Weight: 48 kg

DRUGS (13)
  1. VIOXX [Suspect]
     Indication: FIBROMYALGIA
     Route: 048
     Dates: start: 20000101, end: 20040604
  2. ASPIRIN [Concomitant]
     Route: 048
  3. ASPIRIN [Concomitant]
     Route: 048
  4. PREMARIN [Concomitant]
     Indication: HORMONE LEVEL ABNORMAL
     Route: 048
  5. PREMARIN [Concomitant]
     Route: 048
  6. ALEVE [Concomitant]
     Indication: PAIN
     Route: 048
  7. ALEVE [Concomitant]
     Route: 048
  8. DYAZIDE [Concomitant]
     Route: 065
     Dates: end: 20040604
  9. DYAZIDE [Concomitant]
     Route: 065
     Dates: end: 20040604
  10. ZOLOFT [Concomitant]
     Indication: ANXIETY DISORDER
     Route: 048
     Dates: end: 20040604
  11. ZOLOFT [Concomitant]
     Route: 048
     Dates: end: 20040604
  12. KLONOPIN [Concomitant]
     Indication: ANXIETY DISORDER
     Route: 065
     Dates: end: 20040604
  13. KLONOPIN [Concomitant]
     Route: 065
     Dates: end: 20040604

REACTIONS (15)
  - APPENDIX DISORDER [None]
  - BUNION OPERATION [None]
  - CARPAL TUNNEL SYNDROME [None]
  - CHRONIC LYMPHOCYTIC LEUKAEMIA [None]
  - DEEP VEIN THROMBOSIS [None]
  - DYSURIA [None]
  - HYPERTENSION [None]
  - LUNG ABSCESS [None]
  - PNEUMONIA [None]
  - PULMONARY EMBOLISM [None]
  - RESTLESS LEGS SYNDROME [None]
  - THROMBOSIS [None]
  - TONSILLAR DISORDER [None]
  - UTERINE DISORDER [None]
  - VARICOSE VEIN [None]
